FAERS Safety Report 8890150 (Version 1)
Quarter: 2012Q4

REPORT INFORMATION
  Report Type: 
  Country: FR (occurrence: FR)
  Receive Date: 20121107
  Receipt Date: 20121107
  Transmission Date: 20130627
  Serious: Yes (Hospitalization, Other)
  Sender: FDA-Public Use
  Company Number: FR-PFIZER INC-2012264652

PATIENT
  Age: 57 Year
  Sex: Female
  Weight: 85 kg

DRUGS (16)
  1. LYRICA [Suspect]
     Indication: PAIN IN LIMB
     Dosage: 50 mg, 1x/day
     Route: 048
     Dates: start: 20120813
  2. AMLODIPINE [Suspect]
     Indication: HYPERTENSION ARTERIAL
     Dosage: 10 mg, 1x/day
     Route: 048
     Dates: start: 20120817, end: 201209
  3. METOPROLOL [Suspect]
     Indication: HYPERTENSION ARTERIAL
     Dosage: 100 mg, 1x/day
     Route: 048
     Dates: start: 20120817, end: 201209
  4. NOVORAPID [Concomitant]
     Dosage: UNK
  5. LANTUS [Concomitant]
     Dosage: UNK
  6. GLUCOPHAGE [Concomitant]
     Dosage: UNK
  7. KARDEGIC [Concomitant]
     Dosage: UNK
  8. VERAPAMIL [Concomitant]
     Indication: HYPERTENSION
     Dosage: UNK
     Dates: end: 20120817
  9. COTRIATEC [Concomitant]
     Dosage: UNK
  10. LONOTEN [Concomitant]
     Indication: HYPERTENSION
     Dosage: UNK
     Dates: end: 20120817
  11. SYMBICORT [Concomitant]
     Dosage: UNK
  12. VENTOLINE [Concomitant]
     Dosage: UNK
  13. XYZAL [Concomitant]
     Dosage: UNK
  14. FOLIC ACID [Concomitant]
     Dosage: UNK
  15. NASONEX [Concomitant]
     Dosage: UNK
  16. TAVANIC [Concomitant]
     Dosage: UNK
     Dates: end: 20120826

REACTIONS (5)
  - Vascular purpura [Not Recovered/Not Resolved]
  - Polyneuropathy [Not Recovered/Not Resolved]
  - Sialoadenitis [Unknown]
  - Intervertebral disc degeneration [Unknown]
  - Histone antibody positive [Unknown]
